FAERS Safety Report 5941301-5 (Version None)
Quarter: 2008Q4

REPORT INFORMATION
  Report Type: 
  Country: None (occurrence: None)
  Receive Date: 20081103
  Receipt Date: 20081103
  Transmission Date: 20090506
  Serious: Yes (Other)
  Sender: FDA-Public Use
  Company Number: None

PATIENT
  Age: 51 Year
  Sex: Female
  Weight: 62.5964 kg

DRUGS (1)
  1. BENICAR [Suspect]
     Indication: HYPERTENSION
     Dosage: 20 MG. ONCE DAILY PO
     Route: 048
     Dates: start: 20080501, end: 20081031

REACTIONS (12)
  - ALOPECIA [None]
  - ANURIA [None]
  - ASTHENIA [None]
  - CONFUSIONAL STATE [None]
  - COUGH [None]
  - DEPRESSION [None]
  - FATIGUE [None]
  - NASAL CONGESTION [None]
  - NIGHTMARE [None]
  - OEDEMA PERIPHERAL [None]
  - SWELLING [None]
  - TREMOR [None]
